FAERS Safety Report 4860073-9 (Version None)
Quarter: 2005Q4

REPORT INFORMATION
  Report Type: 
  Country: None (occurrence: None)
  Receive Date: 20051219
  Receipt Date: 20051207
  Transmission Date: 20060501
  Serious: Yes (Death, Hospitalization)
  Sender: FDA-Public Use
  Company Number: US-JNJFOC-20041201037

PATIENT
  Sex: Female
  Weight: 59.42 kg

DRUGS (9)
  1. REMICADE [Suspect]
     Route: 042
  2. REMICADE [Suspect]
     Indication: RHEUMATOID ARTHRITIS
     Route: 042
  3. PREDNISONE TAB [Concomitant]
     Dosage: WAS ON THIS DOSE AT TIME OF DEATH
  4. PREDNISONE TAB [Concomitant]
  5. SYNTHROID [Concomitant]
  6. FOLIC ACID [Concomitant]
  7. CALCIUM GLUCONATE [Concomitant]
  8. ACTONEL [Concomitant]
  9. METHOTREXATE [Concomitant]

REACTIONS (16)
  - ARRHYTHMIA [None]
  - CARDIAC ARREST [None]
  - CHRONIC OBSTRUCTIVE PULMONARY DISEASE [None]
  - DIFFUSE ALVEOLAR DAMAGE [None]
  - DISEASE PROGRESSION [None]
  - DISSEMINATED TUBERCULOSIS [None]
  - DYSPHAGIA [None]
  - HEPATIC STEATOSIS [None]
  - HERPES SIMPLEX [None]
  - HYPOXIA [None]
  - PNEUMONIA [None]
  - PULMONARY FIBROSIS [None]
  - RHEUMATOID LUNG [None]
  - SKIN ULCER [None]
  - TACHYCARDIA [None]
  - TACHYPNOEA [None]
